FAERS Safety Report 25036823 (Version 1)
Quarter: 2025Q1

REPORT INFORMATION
  Report Type: Spontaneous
  Country: FR (occurrence: FR)
  Receive Date: 20250304
  Receipt Date: 20250304
  Transmission Date: 20250409
  Serious: Yes (Other)
  Sender: MYLAN
  Company Number: None

PATIENT
  Age: 85 Year
  Sex: Female
  Weight: 56 kg

DRUGS (7)
  1. LANSOPRAZOLE [Suspect]
     Active Substance: LANSOPRAZOLE
     Indication: Abdominal pain upper
     Dosage: 15 MILLIGRAM, QD
     Dates: start: 20241214
  2. AMOXICILLIN [Suspect]
     Active Substance: AMOXICILLIN
     Indication: Osteitis
     Dosage: 3 GRAM, QD (AMOXICILLIN/CLAVULANIC ACID 1G/125MG CNS, 3/DAY)
     Dates: start: 20241023, end: 20250101
  3. AMOXICILLIN [Suspect]
     Active Substance: AMOXICILLIN
     Dosage: 1 GRAM, TID, (1G 3/DAY) (3 GRAM, DAILY (QD))
     Dates: start: 20241023, end: 20250101
  4. VORICONAZOLE [Suspect]
     Active Substance: VORICONAZOLE
     Indication: Osteitis
     Dosage: 200 MILLIGRAM, BID (200 MG 2/DAY) (400 MILLIGRAM, DAILY (QD))
     Dates: start: 20241030
  5. SULFAMETHOXAZOLE [Suspect]
     Active Substance: SULFAMETHOXAZOLE
     Indication: Osteitis
     Dosage: 800 MILLIGRAM, QD
     Dates: start: 20241015
  6. TRIMETHOPRIM [Suspect]
     Active Substance: TRIMETHOPRIM
     Indication: Osteitis
     Dosage: 800 MILLIGRAM, QD
     Dates: start: 20241015
  7. CLAVULANIC ACID [Suspect]
     Active Substance: CLAVULANIC ACID
     Indication: Osteitis
     Dosage: 375 MILLIGRAM, QD (AMOXICILLIN/CLAVULANIC ACID 1G/125MG CNS, 3/DAY)
     Dates: start: 20241023, end: 20250101

REACTIONS (1)
  - Cholestasis [Not Recovered/Not Resolved]

NARRATIVE: CASE EVENT DATE: 20241231
